FAERS Safety Report 21650288 (Version 2)
Quarter: 2022Q4

REPORT INFORMATION
  Report Type: Spontaneous
  Country: US (occurrence: US)
  Receive Date: 20221128
  Receipt Date: 20221221
  Transmission Date: 20230112
  Serious: No
  Sender: FDA-Public Use
  Company Number: US-INCYTE CORPORATION-2022IN011241

PATIENT

DRUGS (1)
  1. JAKAFI [Suspect]
     Active Substance: RUXOLITINIB
     Indication: Polycythaemia vera
     Dosage: 15 MILLIGRAM, BID
     Route: 048
     Dates: start: 202201

REACTIONS (5)
  - Micturition urgency [Unknown]
  - Dysuria [Unknown]
  - Urinary sediment present [Unknown]
  - Bladder disorder [Unknown]
  - Urinary tract infection [Unknown]
